FAERS Safety Report 18136083 (Version 3)
Quarter: 2022Q1

REPORT INFORMATION
  Report Type: Spontaneous
  Country: IT (occurrence: IT)
  Receive Date: 20200811
  Receipt Date: 20220128
  Transmission Date: 20220423
  Serious: Yes (Hospitalization, Other)
  Sender: FDA-Public Use
  Company Number: IT-NOVARTISPH-NVSC2020IT219201

PATIENT
  Age: 28 Year
  Sex: Female

DRUGS (7)
  1. LETROZOLE [Suspect]
     Active Substance: LETROZOLE
     Indication: Controlled ovarian stimulation
     Dosage: 5 MG
     Route: 065
  2. ENOXAPARIN SODIUM [Suspect]
     Active Substance: ENOXAPARIN SODIUM
     Indication: Haemorrhage prophylaxis
     Dosage: 1 DF, QD
     Route: 065
  3. ENOXAPARIN SODIUM [Suspect]
     Active Substance: ENOXAPARIN SODIUM
     Dosage: 4000 IU, QD
     Route: 065
  4. DECAPEPTYL (ACETATE) [Suspect]
     Active Substance: TRIPTORELIN ACETATE
     Indication: Prophylactic chemotherapy
     Dosage: 0.2 MG
     Route: 065
  5. DECAPEPTYL (ACETATE) [Suspect]
     Active Substance: TRIPTORELIN ACETATE
     Indication: Controlled ovarian stimulation
     Dosage: 375 MG/ML
     Route: 065
  6. ORGALUTRAN [Suspect]
     Active Substance: GANIRELIX ACETATE
     Indication: Controlled ovarian stimulation
     Dosage: 1 DF, QD, STARTED RECEIVING INJECTION OF GANIRELIX (ORGALUTRAN)
     Route: 065
  7. FOLLITROPIN ALFA [Suspect]
     Active Substance: FOLLITROPIN ALFA
     Indication: Controlled ovarian stimulation
     Dosage: 150 IU, QD
     Route: 065

REACTIONS (8)
  - Ovarian hyperstimulation syndrome [Recovered/Resolved]
  - Off label use [Unknown]
  - Dysuria [Unknown]
  - Ascites [Unknown]
  - Abdominal pain [Unknown]
  - Nausea [Unknown]
  - Vomiting [Unknown]
  - Abdominal distension [Unknown]
